FAERS Safety Report 16366820 (Version 1)
Quarter: 2019Q2

REPORT INFORMATION
  Report Type: Spontaneous
  Country: US (occurrence: US)
  Receive Date: 20190422
  Receipt Date: 20190422
  Transmission Date: 20190711
  Serious: Yes (Hospitalization)
  Sender: FDA-Public Use
  Company Number: None

PATIENT
  Age: 67 Year
  Sex: Male

DRUGS (1)
  1. CAPECITABINE. [Suspect]
     Active Substance: CAPECITABINE
     Indication: ADENOCARCINOMA
     Route: 048
     Dates: start: 20181010

REACTIONS (6)
  - Hypokalaemia [None]
  - Weight decreased [None]
  - Diarrhoea [None]
  - Asthenia [None]
  - Fall [None]
  - Adult failure to thrive [None]

NARRATIVE: CASE EVENT DATE: 20190307
